FAERS Safety Report 22121847 (Version 2)
Quarter: 2023Q2

REPORT INFORMATION
  Report Type: Report from Study
  Country: NL (occurrence: NL)
  Receive Date: 20230321
  Receipt Date: 20230531
  Transmission Date: 20230722
  Serious: Yes (Life-Threatening, Hospitalization, Other)
  Sender: FDA-Public Use
  Company Number: NL-ROCHE-3268871

PATIENT
  Age: 36 Year
  Sex: Female
  Weight: 105 kg

DRUGS (4)
  1. RITUXIMAB [Suspect]
     Active Substance: RITUXIMAB
     Indication: Diffuse large B-cell lymphoma
     Dosage: 375 MG/M2, EVERY 3 WEEKS, PATIENT RECEIVED CYCLE 1 DAY 1 (C1D1)
     Route: 042
     Dates: start: 20221129, end: 20221129
  2. BENDAMUSTINE [Suspect]
     Active Substance: BENDAMUSTINE
     Indication: Diffuse large B-cell lymphoma
     Dosage: 90 MG/M2, 1X/DAY, PATIENT RECEIVED CYCLE 1 DAY 2 (C1D2),LATEST DOSE ADMINISTERED ON 30NOV2022
     Route: 042
     Dates: start: 20221129, end: 20221130
  3. DEXAMETHASONE [Concomitant]
     Active Substance: DEXAMETHASONE
     Dosage: 3 MG
     Route: 048
     Dates: start: 20221201, end: 20221202
  4. PANTOPRAZOLE [Concomitant]
     Active Substance: PANTOPRAZOLE
     Dosage: UNK
     Dates: start: 20220824

REACTIONS (2)
  - Neutropenia [Not Recovered/Not Resolved]
  - COVID-19 [Recovered/Resolved]

NARRATIVE: CASE EVENT DATE: 20221210
